FAERS Safety Report 5667296 (Version 2)
Quarter: 2019Q2

REPORT INFORMATION
  Report Type: Spontaneous
  Country: DE (occurrence: DE)
  Receive Date: 20041011
  Receipt Date: 20190402
  Transmission Date: 20190711
  Serious: Yes (Other)
  Sender: FDA-Public Use
  Company Number: PHBS2004DE12983

PATIENT

DRUGS (1)
  1. HYDROCHLOROTHIAZIDE. [Suspect]
     Active Substance: HYDROCHLOROTHIAZIDE
     Indication: TOOTH DISORDER
     Dosage: 0.5 MG/KG, UNK
     Route: 065

REACTIONS (4)
  - Hypokalaemia [Recovering/Resolving]
  - Hypercalciuria [Unknown]
  - Renal cyst [Unknown]
  - Proteinuria [Unknown]
